FAERS Safety Report 10989964 (Version 1)
Quarter: 2015Q2

REPORT INFORMATION
  Report Type: Spontaneous
  Country: BE (occurrence: BE)
  Receive Date: 20150406
  Receipt Date: 20150406
  Transmission Date: 20150821
  Serious: Yes (Death)
  Sender: FDA-Public Use
  Company Number: BE-CIPLA LTD.-2015BE02634

PATIENT

DRUGS (2)
  1. CARBOPLATIN. [Suspect]
     Active Substance: CARBOPLATIN
     Indication: NEOPLASM
     Dosage: AUC 6, 1 HOUR INFUSION ON DAY 1 EVERY 3 WEEKS FOR 11 CYCLES
  2. VOLASERTIB [Suspect]
     Active Substance: VOLASERTIB
     Indication: NEOPLASM
     Dosage: 300 MG, SINGLE DOSE, OVER 2 HOURS ON DAY 1, EVERY 3 WEEKS FOR 6 CYCLES

REACTIONS (1)
  - Neoplasm progression [Fatal]
